FAERS Safety Report 9219376 (Version 1)
Quarter: 2013Q1

REPORT INFORMATION
  Report Type: Spontaneous
  Country: US (occurrence: None)
  Receive Date: 20120828
  Receipt Date: 20120828
  Transmission Date: 20140127
  Serious: Yes (Other)
  Sender: FDA-Public Use
  Company Number: 2012BH005604

PATIENT
  Sex: 0

DRUGS (1)
  1. KIOVIG LIQUID 10 % SOLUTION FOR INFUSION VIAL, GLASS(IMMUNOGLOBUIN, NORMAL HUMAN)SOLUTION FOR INFUSION) [Suspect]
     Indication: PRODUCT USED FOR UNKNOWN INDICATION
     Route: 042

REACTIONS (1)
  - Tachycardia [None]
